FAERS Safety Report 6528448-X (Version None)
Quarter: 2010Q1

REPORT INFORMATION
  Report Type: 
  Country: None (occurrence: None)
  Receive Date: 20100106
  Receipt Date: 20091222
  Transmission Date: 20100710
  Serious: Yes (Death)
  Sender: FDA-Public Use
  Company Number: B0583580A

PATIENT
  Age: 57 Year
  Sex: Male

DRUGS (18)
  1. CHLORAMBUCIL [Suspect]
  2. CYCLOPHOSPHAMIDE [Suspect]
     Dosage: 800MG PER DAY
     Route: 048
     Dates: start: 20031101
  3. FLUDARABINE [Suspect]
     Route: 048
     Dates: start: 20031101
  4. THALIDOMIDE [Suspect]
     Route: 048
     Dates: start: 20040201
  5. DEXAMETHASONE [Suspect]
     Dosage: 4MG PER DAY
     Route: 048
  6. FOLINIC ACID [Suspect]
     Indication: TOXOPLASMOSIS
     Dosage: 15MG PER DAY
  7. MEROPENEM [Concomitant]
     Indication: BACTERIAL INFECTION
     Dosage: 6G PER DAY
     Route: 042
  8. DESFERRIOXAMINE [Concomitant]
     Dates: start: 20040101
  9. CIPROFLOXACIN [Concomitant]
     Indication: ECTHYMA
     Dosage: 1500MG PER DAY
     Route: 065
  10. RITUXIMAB [Concomitant]
     Dosage: 375MGM2 PER DAY
     Route: 065
  11. GENTAMICIN [Concomitant]
     Indication: BACTERIAL INFECTION
     Route: 065
  12. ERTAPENEM [Concomitant]
     Indication: BACTERIAL INFECTION
     Route: 065
  13. AMBISOME [Concomitant]
     Indication: BACTERIAL INFECTION
     Dosage: 50MG PER DAY
     Route: 042
  14. SULPHADIAZINE [Concomitant]
     Indication: TOXOPLASMOSIS
     Dosage: 4G PER DAY
  15. METRONIDAZOLE [Concomitant]
     Indication: BACTERIAL INFECTION
     Dosage: 1500MG PER DAY
     Route: 042
  16. PYRIMETHAMINE TAB [Concomitant]
     Indication: TOXOPLASMOSIS
     Dosage: 100MG PER DAY
     Route: 048
  17. MEROPENEM [Concomitant]
     Dates: start: 20040101
  18. ACICLOVIR [Concomitant]
     Dosage: 800MG PER DAY
     Route: 048

REACTIONS (10)
  - BACTERIAL INFECTION [None]
  - BONE MARROW FAILURE [None]
  - CEREBRAL TOXOPLASMOSIS [None]
  - CITROBACTER SEPSIS [None]
  - GANGRENE [None]
  - HYPOGAMMAGLOBULINAEMIA [None]
  - MOLLUSCUM CONTAGIOSUM [None]
  - PANCYTOPENIA [None]
  - PSEUDOMONAL SEPSIS [None]
  - STREPTOCOCCAL INFECTION [None]
